FAERS Safety Report 12546699 (Version 1)
Quarter: 2016Q3

REPORT INFORMATION
  Report Type: Spontaneous
  Country: IE (occurrence: IE)
  Receive Date: 20160711
  Receipt Date: 20160711
  Transmission Date: 20161109
  Serious: Yes (Hospitalization, Other)
  Sender: FDA-Public Use
  Company Number: IE-GLAXOSMITHKLINE-IE2016GSK098433

PATIENT
  Age: 9 Year
  Sex: Female
  Weight: 18.8 kg

DRUGS (2)
  1. MONTELUKAST [Concomitant]
     Active Substance: MONTELUKAST SODIUM
     Indication: ASTHMA
  2. BECLOMETASONE [Suspect]
     Active Substance: BECLOMETHASONE DIPROPIONATE
     Indication: STEROID THERAPY
     Dosage: 200 MG, BID

REACTIONS (4)
  - Oesophageal candidiasis [Recovering/Resolving]
  - Abdominal pain upper [Not Recovered/Not Resolved]
  - Dysphagia [Recovering/Resolving]
  - Odynophagia [Recovering/Resolving]
